FAERS Safety Report 11359157 (Version 1)
Quarter: 2015Q3

REPORT INFORMATION
  Report Type: Spontaneous
  Country: FR (occurrence: FR)
  Receive Date: 20150807
  Receipt Date: 20150807
  Transmission Date: 20151125
  Serious: Yes (Other)
  Sender: FDA-Public Use
  Company Number: FR-ASTRAZENECA-2015SE75126

PATIENT
  Age: 61 Year
  Sex: Male

DRUGS (2)
  1. SYMBICORT [Suspect]
     Active Substance: BUDESONIDE\FORMOTEROL FUMARATE DIHYDRATE
     Indication: ASTHMATIC CRISIS
     Dosage: TBH 200, 160/4.5 UG PER DOSE, 1 INHALATION IN CASE OF ASTHMA CRISIS
     Route: 055
     Dates: start: 2015
  2. SYMBICORT [Suspect]
     Active Substance: BUDESONIDE\FORMOTEROL FUMARATE DIHYDRATE
     Indication: ASTHMATIC CRISIS
     Dosage: TBH 400, 160/4.5 UG PER DOSE
     Route: 055
     Dates: start: 2014

REACTIONS (4)
  - Drug ineffective for unapproved indication [Recovered/Resolved]
  - Off label use [Not Recovered/Not Resolved]
  - Product use issue [Unknown]
  - Asthmatic crisis [Recovered/Resolved]

NARRATIVE: CASE EVENT DATE: 2015
